FAERS Safety Report 6133799-7 (Version None)
Quarter: 2009Q1

REPORT INFORMATION
  Report Type: 
  Country: None (occurrence: None)
  Receive Date: 20090326
  Receipt Date: 20090312
  Transmission Date: 20090719
  Serious: Yes (Hospitalization)
  Sender: FDA-Public Use
  Company Number: US-PFIZER INC-2009183344

PATIENT
  Age: 58 Year
  Sex: Female

DRUGS (3)
  1. AMLODIPINE BESYLATE [Suspect]
     Indication: HYPERTENSION
     Dosage: UNK
     Dates: start: 20060821, end: 20060907
  2. DIOVAN [Suspect]
     Dosage: UNK
     Dates: start: 20060821, end: 20060907
  3. HYDROCHLOROTHIAZIDE [Suspect]
     Dosage: UNK
     Dates: start: 20060821, end: 20060907

REACTIONS (11)
  - ABASIA [None]
  - ASTHENIA [None]
  - ATAXIA [None]
  - CHRONIC OBSTRUCTIVE PULMONARY DISEASE [None]
  - FUNGAL SKIN INFECTION [None]
  - HYPOMAGNESAEMIA [None]
  - HYPONATRAEMIA [None]
  - MONONEUROPATHY [None]
  - RENAL FAILURE ACUTE [None]
  - RHABDOMYOLYSIS [None]
  - URINARY TRACT INFECTION [None]
